FAERS Safety Report 22145062 (Version 1)
Quarter: 2023Q1

REPORT INFORMATION
  Report Type: Spontaneous
  Country: NL (occurrence: NL)
  Receive Date: 20230328
  Receipt Date: 20230328
  Transmission Date: 20230417
  Serious: Yes (Other)
  Sender: FDA-Public Use
  Company Number: None

PATIENT
  Sex: Female
  Weight: 60 kg

DRUGS (3)
  1. METOPROLOL [Suspect]
     Active Substance: METOPROLOL
     Indication: Hypertension
     Dosage: 50 MG, QD (1XDAAGS 1 STUK)
     Route: 065
     Dates: start: 20230216
  2. PREGABALIN [Suspect]
     Active Substance: PREGABALIN
     Indication: Restlessness
     Dosage: 75 MG (4X75 GRAM VERDEELD OVER 3 MOMENTEN)
     Route: 065
     Dates: start: 20230216
  3. ETHINYL ESTRADIOL\LEVONORGESTREL [Concomitant]
     Active Substance: ETHINYL ESTRADIOL\LEVONORGESTREL
     Indication: Product used for unknown indication
     Dosage: UNK (TABLET)
     Route: 065

REACTIONS (3)
  - Suicidal ideation [Recovering/Resolving]
  - Aggression [Recovering/Resolving]
  - Depressed mood [Recovered/Resolved]
